FAERS Safety Report 11948739 (Version 2)
Quarter: 2016Q1

REPORT INFORMATION
  Report Type: Report from Study
  Country: US (occurrence: US)
  Receive Date: 20160125
  Receipt Date: 20160201
  Transmission Date: 20160526
  Serious: No
  Sender: FDA-Public Use
  Company Number: US-ABBVIE-15K-163-1331324-00

PATIENT
  Age: 68 Year
  Sex: Female

DRUGS (1)
  1. HUMIRA [Suspect]
     Active Substance: ADALIMUMAB
     Indication: RHEUMATOID ARTHRITIS
     Route: 065
     Dates: start: 20140829

REACTIONS (8)
  - Abdominal distension [Unknown]
  - Neck pain [Not Recovered/Not Resolved]
  - Urinary tract infection [Recovered/Resolved]
  - Dysgeusia [Not Recovered/Not Resolved]
  - Chest pain [Recovered/Resolved]
  - Chromaturia [Recovered/Resolved]
  - Liquid product physical issue [Unknown]
  - Feeling hot [Recovered/Resolved]

NARRATIVE: CASE EVENT DATE: 2012
